FAERS Safety Report 6526362-7 (Version None)
Quarter: 2010Q1

REPORT INFORMATION
  Report Type: 
  Country: None (occurrence: None)
  Receive Date: 20100105
  Receipt Date: 20091229
  Transmission Date: 20100710
  Serious: Yes (Death, Other)
  Sender: FDA-Public Use
  Company Number: US-TEVA-215999USA

PATIENT
  Age: 23 Year
  Sex: Female

DRUGS (5)
  1. MERCAPTOPURINE [Suspect]
     Indication: CROHN'S DISEASE
     Dates: end: 20010101
  2. CORTICOSTEROIDS [Suspect]
     Indication: CROHN'S DISEASE
  3. INFLIXIMAB [Suspect]
     Indication: CROHN'S DISEASE
     Dates: start: 20010101
  4. ADALIMUMAB [Suspect]
     Indication: CROHN'S DISEASE
  5. TACROLIMUS [Suspect]
     Indication: CROHN'S DISEASE

REACTIONS (1)
  - ADENOCARCINOMA [None]
